FAERS Safety Report 7222354-3 (Version None)
Quarter: 2011Q1

REPORT INFORMATION
  Report Type: 
  Country: None (occurrence: None)
  Receive Date: 20110112
  Receipt Date: 20061213
  Transmission Date: 20110831
  Serious: Yes (Other)
  Sender: FDA-Public Use
  Company Number: PHHY2006US02711

PATIENT
  Sex: Female

DRUGS (2)
  1. PLAVIX [Concomitant]
  2. LOPRESSOR [Suspect]
     Dosage: 100 MG, BID

REACTIONS (1)
  - MYOCARDIAL INFARCTION [None]
